FAERS Safety Report 11845600 (Version 1)
Quarter: 2015Q4

REPORT INFORMATION
  Report Type: Spontaneous
  Country: US (occurrence: US)
  Receive Date: 20151217
  Receipt Date: 20151217
  Transmission Date: 20160305
  Serious: Yes (Hospitalization)
  Sender: FDA-Public Use
  Company Number: US-MYLANLABS-2015M1044774

PATIENT

DRUGS (3)
  1. HYDROMORPHONE [Suspect]
     Active Substance: HYDROMORPHONE
     Indication: IMPAIRED GASTRIC EMPTYING
     Dosage: INITIAL DOSE NOT STATED; 2MG
     Route: 048
  2. BOTULINUM TOXIN [Concomitant]
     Active Substance: BOTULINUM TOXIN TYPE A
     Indication: PAIN
     Route: 065
  3. FENTANYL. [Suspect]
     Active Substance: FENTANYL
     Indication: IMPAIRED GASTRIC EMPTYING
     Dosage: INITIAL DOSE NOT STATED; 100MICROG/H
     Route: 062

REACTIONS (2)
  - Narcotic bowel syndrome [Recovered/Resolved]
  - Drug withdrawal syndrome [Recovered/Resolved]
